FAERS Safety Report 5646325-3 (Version None)
Quarter: 2008Q1

REPORT INFORMATION
  Report Type: 
  Country: None (occurrence: None)
  Receive Date: 20080227
  Receipt Date: 20080211
  Transmission Date: 20080703
  Serious: Yes (Hospitalization)
  Sender: FDA-Public Use
  Company Number: 2008EU000301

PATIENT
  Age: 32 Year
  Sex: Male

DRUGS (5)
  1. PROGRAF [Suspect]
     Indication: LUNG TRANSPLANT
     Dosage: 6 MG, /D
  2. CELLCEPT [Suspect]
     Indication: LUNG TRANSPLANT
     Dosage: 2 G, /D
  3. CERTICAN (EVEROLIMUS) [Concomitant]
  4. PREDNISONE [Concomitant]
  5. VALACYCLOVIR HCL [Concomitant]

REACTIONS (5)
  - CELLULITIS [None]
  - DEHYDRATION [None]
  - DRUG TOXICITY [None]
  - MUCOSAL INFLAMMATION [None]
  - RENAL FAILURE ACUTE [None]
